FAERS Safety Report 5343693-7 (Version None)
Quarter: 2007Q2

REPORT INFORMATION
  Report Type: 
  Country: None (occurrence: None)
  Receive Date: 20070531
  Receipt Date: 20070531
  Transmission Date: 20071010
  Serious: Yes (Life-Threatening)
  Sender: FDA-Public Use
  Company Number: None

PATIENT
  Sex: Female
  Weight: 6.3 kg

DRUGS (2)
  1. VANCOMYCIN [Suspect]
     Indication: ENTEROBACTER INFECTION
     Dosage: 80MG EVERY 8 HOURS IV
     Route: 042
     Dates: start: 20070401, end: 20070402
  2. VANCOMYCIN [Suspect]
     Indication: ENTEROBACTER SEPSIS
     Dosage: 80MG EVERY 8 HOURS IV
     Route: 042
     Dates: start: 20070401, end: 20070402

REACTIONS (1)
  - THROMBOCYTOPENIA [None]
